FAERS Safety Report 9285787 (Version 3)
Quarter: 2013Q3

REPORT INFORMATION
  Report Type: Spontaneous
  Country: US (occurrence: US)
  Receive Date: 20130513
  Receipt Date: 20130722
  Transmission Date: 20140515
  Serious: Yes (Other)
  Sender: FDA-Public Use
  Company Number: US-PFIZER INC-2013146824

PATIENT
  Age: 51 Year
  Sex: Female
  Weight: 78.46 kg

DRUGS (5)
  1. CHANTIX [Suspect]
     Indication: SMOKING CESSATION THERAPY
     Dosage: 0.5MG (HALF OF 1 MG TABLET), DAILY
     Route: 048
     Dates: start: 201305, end: 201305
  2. CHANTIX [Suspect]
     Dosage: HALF OF 1 MG, 2X/DAY
     Route: 048
     Dates: start: 201305, end: 201305
  3. CHANTIX [Suspect]
     Dosage: 1 MG, DAILY ONLY IN THE MORNING
     Route: 048
     Dates: start: 20130508, end: 201305
  4. CHANTIX [Suspect]
     Dosage: 0.5 MG, 2X/DAY
     Route: 048
     Dates: start: 20130508, end: 20130509
  5. ONE-A-DAY [Concomitant]
     Indication: VITAMIN SUPPLEMENTATION
     Dosage: UNK

REACTIONS (7)
  - Pharyngeal oedema [Recovered/Resolved]
  - Throat tightness [Recovered/Resolved]
  - Stomatitis [Recovered/Resolved]
  - Burning sensation [Recovered/Resolved]
  - Foreign body [Recovered/Resolved]
  - Paraesthesia [Recovered/Resolved]
  - Erythema [Recovered/Resolved]
